FAERS Safety Report 13682652 (Version 2)
Quarter: 2017Q2

REPORT INFORMATION
  Report Type: Spontaneous
  Country: US (occurrence: US)
  Receive Date: 20170623
  Receipt Date: 20170623
  Transmission Date: 20170830
  Serious: No
  Sender: FDA-Public Use
  Company Number: US-MALLINCKRODT-T201603718

PATIENT
  Age: 74 Year
  Sex: Female

DRUGS (1)
  1. H.P. ACTHAR [Suspect]
     Active Substance: CORTICOTROPIN
     Indication: IRITIS
     Dosage: 80U/1ML, TWICE A WEEK
     Route: 058
     Dates: start: 201607

REACTIONS (2)
  - Oropharyngeal pain [Unknown]
  - Injection site rash [Recovered/Resolved]
